FAERS Safety Report 13366868 (Version 1)
Quarter: 2017Q1

REPORT INFORMATION
  Report Type: Spontaneous
  Country: RU (occurrence: RU)
  Receive Date: 20170323
  Receipt Date: 20170323
  Transmission Date: 20170429
  Serious: Yes (Life-Threatening)
  Sender: FDA-Public Use
  Company Number: RU-ROCHE-1910199

PATIENT
  Age: 48 Year

DRUGS (1)
  1. ACTEMRA [Suspect]
     Active Substance: TOCILIZUMAB
     Indication: PRODUCT USED FOR UNKNOWN INDICATION
     Route: 042

REACTIONS (3)
  - Bronchospasm [Recovered/Resolved]
  - Oedema [Recovered/Resolved]
  - Hyperaemia [Recovered/Resolved]
